FAERS Safety Report 16388587 (Version 1)
Quarter: 2019Q3

REPORT INFORMATION
  Report Type: Spontaneous
  Country: AU (occurrence: AU)
  Receive Date: 20190601
  Receipt Date: 20190601
  Transmission Date: 20191004
  Serious: Yes (Disabling)
  Sender: FDA-Public Use
  Company Number: None

PATIENT
  Age: 41 Year
  Sex: Female
  Weight: 100 kg

DRUGS (3)
  1. RESPIKAST 10 (MONTELUKAST (QA)) [Suspect]
     Active Substance: MONTELUKAST SODIUM
     Indication: ASTHMA
     Dosage: ?          QUANTITY:1 TABLET(S);?
     Route: 048
     Dates: start: 20180212, end: 20180312
  2. RESPIKAST 10 (MONTELUKAST (QA)) [Suspect]
     Active Substance: MONTELUKAST SODIUM
     Indication: ASPIRIN-EXACERBATED RESPIRATORY DISEASE
     Dosage: ?          QUANTITY:1 TABLET(S);?
     Route: 048
     Dates: start: 20180212, end: 20180312
  3. SERETIDE BRICYL [Concomitant]

REACTIONS (10)
  - Reading disorder [None]
  - Anxiety [None]
  - Depression [None]
  - Amnesia [None]
  - Speech disorder [None]
  - Cognitive disorder [None]
  - Dysgraphia [None]
  - Language disorder [None]
  - Loss of personal independence in daily activities [None]
  - Fear [None]

NARRATIVE: CASE EVENT DATE: 20180216
